FAERS Safety Report 9370107 (Version 2)
Quarter: 2018Q1

REPORT INFORMATION
  Report Type: Spontaneous
  Country: GB (occurrence: GB)
  Receive Date: 20130626
  Receipt Date: 20180320
  Transmission Date: 20180509
  Serious: Yes (Hospitalization)
  Sender: FDA-Public Use
  Company Number: GB-ALLERGAN-1309066US

PATIENT
  Age: 90 Year
  Sex: Female

DRUGS (4)
  1. BECONASE AQ [Concomitant]
     Active Substance: BECLOMETHASONE DIPROPIONATE MONOHYDRATE
  2. HYABAK [Concomitant]
     Active Substance: HYALURONATE SODIUM
  3. FML [Suspect]
     Active Substance: FLUOROMETHOLONE
     Indication: HERPES ZOSTER
     Dosage: 1 GTT, TID
     Route: 047
     Dates: start: 20130524, end: 20130529
  4. CLENIL MODULITE [Concomitant]
     Active Substance: BECLOMETHASONE DIPROPIONATE

REACTIONS (2)
  - Confusional state [Recovered/Resolved]
  - Hallucination [Recovered/Resolved]

NARRATIVE: CASE EVENT DATE: 20130524
